FAERS Safety Report 10793400 (Version 2)
Quarter: 2015Q2

REPORT INFORMATION
  Report Type: Spontaneous
  Country: US (occurrence: US)
  Receive Date: 20150213
  Receipt Date: 20150420
  Transmission Date: 20150821
  Serious: No
  Sender: FDA-Public Use
  Company Number: US-PFIZER INC-2015056378

PATIENT
  Age: 67 Year
  Sex: Female
  Weight: 62 kg

DRUGS (2)
  1. ZITHROMAX [Suspect]
     Active Substance: AZITHROMYCIN DIHYDRATE
     Indication: PROPHYLAXIS
  2. ZITHROMAX [Suspect]
     Active Substance: AZITHROMYCIN DIHYDRATE
     Indication: SINUSITIS
     Dosage: 250 MG, UNK (1ST DAY -1X/DAY 4 DAYS)
     Dates: start: 20150121, end: 20150125

REACTIONS (1)
  - Drug ineffective [Unknown]
